FAERS Safety Report 8490910-0 (Version None)
Quarter: 2012Q2

REPORT INFORMATION
  Report Type: 
  Country: None (occurrence: None)
  Receive Date: 20120629
  Receipt Date: 20120629
  Transmission Date: 20120825
  Serious: Yes (Life-Threatening)
  Sender: FDA-Public Use
  Company Number: None

PATIENT
  Age: 41 Year
  Sex: Female
  Weight: 136.9863 kg

DRUGS (2)
  1. RITUXIMAB 1000 MG GENENTECH [Suspect]
     Indication: RHEUMATOID ARTHRITIS
     Dosage: 1000 MG 2 DOSES Q 6 MONTHS IV DRIP
     Route: 041
     Dates: start: 20091225, end: 20120227
  2. METHOTREXATE [Concomitant]

REACTIONS (2)
  - NEURILEMMOMA MALIGNANT [None]
  - METASTASIS [None]
